FAERS Safety Report 5097878-8 (Version None)
Quarter: 2006Q3

REPORT INFORMATION
  Report Type: 
  Country: None (occurrence: None)
  Receive Date: 20060905
  Receipt Date: 20060905
  Transmission Date: 20061208
  Serious: No
  Sender: FDA-Public Use
  Company Number: None

PATIENT
  Sex: Female
  Weight: 90.7194 kg

DRUGS (3)
  1. LIPITOR [Suspect]
     Indication: BLOOD CHOLESTEROL INCREASED
     Dates: start: 20000405, end: 20060704
  2. LIPITOR [Suspect]
     Indication: BLOOD TRIGLYCERIDES INCREASED
     Dates: start: 20000405, end: 20060704
  3. LIPITOR [Suspect]
     Indication: FAMILIAL RISK FACTOR
     Dates: start: 20000405, end: 20060704

REACTIONS (4)
  - FATIGUE [None]
  - IMPAIRED WORK ABILITY [None]
  - MYALGIA [None]
  - NEUROPATHY PERIPHERAL [None]
